FAERS Safety Report 9282812 (Version 2)
Quarter: 2013Q4

REPORT INFORMATION
  Report Type: Report from Study
  Country: CA (occurrence: CA)
  Receive Date: 20130510
  Receipt Date: 20131213
  Transmission Date: 20140711
  Serious: Yes (Hospitalization)
  Sender: FDA-Public Use
  Company Number: CA-JNJFOC-20130502928

PATIENT
  Sex: Female
  Weight: 50.1 kg

DRUGS (4)
  1. REMICADE [Suspect]
     Indication: COLITIS ULCERATIVE
     Dosage: EVERY 6-7 WEEKS
     Route: 042
     Dates: start: 2011
  2. REMICADE [Suspect]
     Indication: COLITIS ULCERATIVE
     Route: 042
  3. REMICADE [Suspect]
     Indication: COLITIS ULCERATIVE
     Dosage: EVERY 6-7 WEEKS??AGE AT START OF INFLIXIMAB: 61 YEARS
     Route: 042
     Dates: start: 2009
  4. HYDROCORTISONE [Concomitant]
     Indication: PREMEDICATION
     Route: 042
     Dates: start: 2010

REACTIONS (1)
  - Ovarian cyst [Not Recovered/Not Resolved]
